FAERS Safety Report 7323410-1 (Version None)
Quarter: 2011Q1

REPORT INFORMATION
  Report Type: 
  Country: None (occurrence: None)
  Receive Date: 20110301
  Receipt Date: 20110223
  Transmission Date: 20110831
  Serious: Yes (Other)
  Sender: FDA-Public Use
  Company Number: US-PFIZER INC-2011040036

PATIENT
  Sex: Male
  Weight: 66.4 kg

DRUGS (4)
  1. KEPPRA [Concomitant]
     Indication: CONVULSION
     Dosage: UNK
  2. SUTENT [Interacting]
     Indication: BONE SARCOMA
     Dosage: 250 MG, UNK
     Route: 048
     Dates: start: 20110103
  3. LAMICTAL [Concomitant]
     Indication: CONVULSION
     Dosage: UNK
  4. DILANTIN [Suspect]
     Indication: CONVULSION
     Dosage: 200 MG, 2X/DAY
     Route: 048

REACTIONS (2)
  - DRUG INTERACTION [None]
  - TOXICITY TO VARIOUS AGENTS [None]
